FAERS Safety Report 24673079 (Version 1)
Quarter: 2024Q4

REPORT INFORMATION
  Report Type: Report from Study
  Country: CA (occurrence: CA)
  Receive Date: 20241128
  Receipt Date: 20241128
  Transmission Date: 20250114
  Serious: Yes (Other)
  Sender: CSL BEHRING
  Company Number: CA-BEH-2024185488

PATIENT
  Age: 19 Year
  Sex: Male
  Weight: 61.224 kg

DRUGS (2)
  1. HIZENTRA [Suspect]
     Active Substance: HUMAN IMMUNOGLOBULIN G
     Indication: Primary immunodeficiency syndrome
     Dosage: UNK UNK, QW
     Route: 065
     Dates: start: 20171108
  2. BIAXIN [Concomitant]
     Active Substance: CLARITHROMYCIN
     Indication: Prophylaxis

REACTIONS (1)
  - Haemorrhage [Unknown]
